FAERS Safety Report 17854861 (Version 1)
Quarter: 2020Q2

REPORT INFORMATION
  Report Type: Spontaneous
  Country: GB (occurrence: GB)
  Receive Date: 20200603
  Receipt Date: 20200603
  Transmission Date: 20200714
  Serious: Yes (Death, Life-Threatening, Hospitalization, Disabling, Other)
  Sender: FDA-Public Use
  Company Number: GB-TEVA-2020-GB-1243265

PATIENT
  Age: 80 Year
  Sex: Female
  Weight: 58.7 kg

DRUGS (14)
  1. ATORVASTATIN [Concomitant]
     Active Substance: ATORVASTATIN
  2. SODIUM VALPROATE [Concomitant]
     Active Substance: VALPROATE SODIUM
  3. LANSOPRAZOLE. [Concomitant]
     Active Substance: LANSOPRAZOLE
  4. ERYTHROMYCIN. [Concomitant]
     Active Substance: ERYTHROMYCIN
  5. MAGNESIUM [Concomitant]
     Active Substance: MAGNESIUM
  6. NYSTATIN. [Concomitant]
     Active Substance: NYSTATIN
  7. MEMANTINE. [Concomitant]
     Active Substance: MEMANTINE
  8. COLCHICINE. [Concomitant]
     Active Substance: COLCHICINE
  9. QUININE SULFATE. [Concomitant]
     Active Substance: QUININE SULFATE
  10. METFORMIN [Concomitant]
     Active Substance: METFORMIN HYDROCHLORIDE
  11. POTASSIUM [Concomitant]
     Active Substance: POTASSIUM
  12. WARFARIN [Suspect]
     Active Substance: WARFARIN
     Indication: ATRIAL FIBRILLATION
     Dosage: 3MG DAILY EXCEPT 2MG ON SATURDAY AND SUNDAY
     Route: 048
     Dates: start: 20130104, end: 20200319
  13. CANDESARTAN. [Concomitant]
     Active Substance: CANDESARTAN
  14. NIFEDIPINE. [Concomitant]
     Active Substance: NIFEDIPINE

REACTIONS (2)
  - International normalised ratio increased [Fatal]
  - COVID-19 pneumonia [Fatal]

NARRATIVE: CASE EVENT DATE: 20200320
